FAERS Safety Report 25129721 (Version 2)
Quarter: 2025Q1

REPORT INFORMATION
  Report Type: Spontaneous
  Country: IT (occurrence: IT)
  Receive Date: 20250327
  Receipt Date: 20250327
  Transmission Date: 20250409
  Serious: Yes (Hospitalization)
  Sender: PFIZER
  Company Number: None

PATIENT
  Age: 11 Year
  Sex: Female
  Weight: 28 kg

DRUGS (5)
  1. VFEND [Suspect]
     Active Substance: VORICONAZOLE
     Indication: Fusarium infection
  2. VFEND [Suspect]
     Active Substance: VORICONAZOLE
     Indication: Fusarium infection
     Route: 042
     Dates: start: 20200609, end: 20200615
  3. AMBISOME [Suspect]
     Active Substance: AMPHOTERICIN B
     Indication: Fusarium infection
     Dosage: 3 MG/KG, 1X/DAY
     Route: 042
     Dates: start: 20200609, end: 20200615
  4. LANSOPRAZOLO DOC [Concomitant]
     Indication: Hypogammaglobulinaemia
     Route: 048
     Dates: start: 20200603, end: 20200710
  5. MYFENAX [Concomitant]
     Active Substance: MYCOPHENOLATE MOFETIL
     Indication: Hypogammaglobulinaemia
     Route: 048
     Dates: start: 20171001, end: 20200609

REACTIONS (5)
  - Hypokalaemia [Recovered/Resolved]
  - Visual impairment [Recovered/Resolved]
  - Pancytopenia [Recovered/Resolved]
  - Procedural nausea [Recovered/Resolved]
  - Headache [Recovered/Resolved]

NARRATIVE: CASE EVENT DATE: 20200612
